FAERS Safety Report 5519868-0 (Version None)
Quarter: 2007Q4

REPORT INFORMATION
  Report Type: 
  Country: None (occurrence: None)
  Receive Date: 20071116
  Receipt Date: 20071114
  Transmission Date: 20080405
  Serious: Yes (Death, Other)
  Sender: FDA-Public Use
  Company Number: HQWYE550113MAR07

PATIENT
  Sex: Female
  Weight: 57 kg

DRUGS (5)
  1. GEMTUZUMAB OZOGAMICIN [Suspect]
     Indication: ACUTE MYELOID LEUKAEMIA
     Dates: start: 20060303, end: 20060303
  2. GEMTUZUMAB OZOGAMICIN [Suspect]
     Dates: start: 20060310, end: 20060310
  3. TARGOCID [Concomitant]
     Route: 042
     Dates: start: 20060225, end: 20060313
  4. TOBRACIN [Concomitant]
     Dosage: 4 X 4 G/DAY
     Route: 042
     Dates: start: 20060218, end: 20060321
  5. DIFLUCAN [Concomitant]
     Route: 042
     Dates: start: 20060223, end: 20060314

REACTIONS (4)
  - BRONCHOPULMONARY ASPERGILLOSIS [None]
  - CAPILLARY LEAK SYNDROME [None]
  - CARDIAC FAILURE [None]
  - NEUTROPENIA [None]
